FAERS Safety Report 18160416 (Version 11)
Quarter: 2025Q1

REPORT INFORMATION
  Report Type: Spontaneous
  Country: US (occurrence: US)
  Receive Date: 20200817
  Receipt Date: 20250220
  Transmission Date: 20250409
  Serious: Yes (Other)
  Sender: PFIZER
  Company Number: US-PFIZER INC-2020309755

PATIENT
  Age: 72 Year
  Sex: Female
  Weight: 47.6 kg

DRUGS (3)
  1. IBRANCE [Suspect]
     Active Substance: PALBOCICLIB
  2. IBRANCE [Suspect]
     Active Substance: PALBOCICLIB
     Route: 048
  3. IBRANCE [Suspect]
     Active Substance: PALBOCICLIB
     Route: 048

REACTIONS (7)
  - Implantable cardiac monitor insertion [Unknown]
  - Blood test abnormal [Unknown]
  - Back pain [Unknown]
  - Illness [Unknown]
  - Off label use [Unknown]
  - Poor quality product administered [Unknown]
  - Product storage error [Unknown]
